FAERS Safety Report 14607054 (Version 2)
Quarter: 2018Q2

REPORT INFORMATION
  Report Type: Spontaneous
  Country: JP (occurrence: JP)
  Receive Date: 20180307
  Receipt Date: 20180612
  Transmission Date: 20180711
  Serious: Yes (Hospitalization, Disabling, Other)
  Sender: FDA-Public Use
  Company Number: JP-ELI_LILLY_AND_COMPANY-JP201802010318

PATIENT
  Age: 72 Year
  Sex: Male
  Weight: 47 kg

DRUGS (9)
  1. EMEND [Concomitant]
     Active Substance: APREPITANT
     Dosage: 80 MG, DAILY
     Route: 048
     Dates: start: 20180127, end: 20180128
  2. EMEND [Concomitant]
     Active Substance: APREPITANT
     Indication: PROPHYLAXIS
     Dosage: 125 MG, DAILY
     Route: 048
     Dates: start: 20180126, end: 20180126
  3. PANVITAN                           /05664401/ [Concomitant]
     Indication: PROPHYLAXIS
     Dosage: 1 G, DAILY
     Route: 048
     Dates: start: 20180119, end: 20180205
  4. CARBOPLATIN. [Suspect]
     Active Substance: CARBOPLATIN
     Indication: LUNG ADENOCARCINOMA STAGE IV
     Dosage: 450 MG, OTHER
     Route: 041
     Dates: start: 20180126, end: 20180126
  5. DECADRON [Concomitant]
     Active Substance: DEXAMETHASONE
     Indication: PROPHYLAXIS
     Dosage: 6.6 MG, DAILY
     Route: 065
     Dates: start: 20180126, end: 20180126
  6. DECADRON [Concomitant]
     Active Substance: DEXAMETHASONE
     Indication: PROPHYLAXIS
     Dosage: 8 MG, DAILY
     Route: 048
     Dates: start: 20180127, end: 20180129
  7. ALIMTA [Suspect]
     Active Substance: PEMETREXED DISODIUM
     Indication: LUNG ADENOCARCINOMA STAGE IV
     Dosage: 800 MG, OTHER
     Route: 041
     Dates: start: 20180126, end: 20180126
  8. AVASTIN [Suspect]
     Active Substance: BEVACIZUMAB
     Indication: LUNG ADENOCARCINOMA STAGE IV
     Dosage: 850 MG, OTHER
     Route: 041
     Dates: start: 20180126, end: 20180126
  9. METHYCOBAL [Concomitant]
     Active Substance: METHYLCOBALAMIN
     Indication: PROPHYLAXIS
     Dosage: 1000 UG, DAILY
     Route: 030
     Dates: start: 20180119, end: 20180119

REACTIONS (4)
  - Large intestine perforation [Recovered/Resolved with Sequelae]
  - Ileus [Unknown]
  - Enterocolitis haemorrhagic [Recovered/Resolved with Sequelae]
  - Febrile neutropenia [Unknown]

NARRATIVE: CASE EVENT DATE: 20180202
